FAERS Safety Report 5838465-0 (Version None)
Quarter: 2008Q3

REPORT INFORMATION
  Report Type: 
  Country: None (occurrence: None)
  Receive Date: 20080808
  Receipt Date: 20080730
  Transmission Date: 20090109
  Serious: Yes (Other)
  Sender: FDA-Public Use
  Company Number: NL-JNJFOC-20080801646

PATIENT
  Sex: Female

DRUGS (6)
  1. TRAMADOL HYDROCHLORIDE [Suspect]
     Indication: PROCTALGIA
     Route: 048
  2. TRAMADOL HYDROCHLORIDE [Suspect]
     Indication: VAGINAL PAIN
     Route: 048
  3. TRAMADOL HYDROCHLORIDE [Suspect]
     Indication: URETHRAL PAIN
     Route: 048
  4. TRANSTEC [Suspect]
     Indication: PROCTALGIA
     Route: 062
  5. TRANSTEC [Suspect]
     Indication: VAGINAL PAIN
     Route: 062
  6. TRANSTEC [Suspect]
     Indication: URETHRAL PAIN
     Route: 062

REACTIONS (2)
  - CONSTIPATION [None]
  - DRUG DEPENDENCE [None]
